FAERS Safety Report 4305838-7 (Version None)
Quarter: 2004Q1

REPORT INFORMATION
  Report Type: 
  Country: None (occurrence: None)
  Receive Date: 20040225
  Receipt Date: 20040213
  Transmission Date: 20041129
  Serious: Yes (Disabling)
  Sender: FDA-Public Use
  Company Number: 200401068

PATIENT
  Age: 83 Year
  Sex: Female

DRUGS (3)
  1. ALPHAGAN P [Suspect]
     Indication: GLAUCOMA
     Dates: start: 20031201
  2. LUMIGAN [Suspect]
     Indication: GLAUCOMA
     Dates: start: 20030401
  3. COSOPT [Suspect]
     Indication: GLAUCOMA
     Dates: start: 20020801

REACTIONS (3)
  - SKIN DISCOLOURATION [None]
  - VISUAL ACUITY REDUCED [None]
  - VISUAL DISTURBANCE [None]
